FAERS Safety Report 13437919 (Version 3)
Quarter: 2017Q2

REPORT INFORMATION
  Report Type: Report from Study
  Country: JP (occurrence: JP)
  Receive Date: 20170413
  Receipt Date: 20170526
  Transmission Date: 20170830
  Serious: Yes (Hospitalization)
  Sender: FDA-Public Use
  Company Number: JP-SA-2017SA042205

PATIENT
  Age: 38 Year
  Sex: Male
  Weight: 83 kg

DRUGS (9)
  1. SAR231893 [Suspect]
     Active Substance: DUPILUMAB
     Indication: DERMATITIS ATOPIC
     Route: 058
     Dates: start: 201606, end: 20170311
  2. HYDROPHILIC [Concomitant]
     Indication: DERMATITIS ATOPIC
     Dosage: DOSE: APPLICATION DOSE
     Route: 061
     Dates: start: 20160122
  3. ATARAX-P [Concomitant]
     Active Substance: HYDROXYZINE HYDROCHLORIDE
     Indication: DERMATITIS ATOPIC
     Route: 048
     Dates: start: 20110219
  4. SAR231893 [Suspect]
     Active Substance: DUPILUMAB
     Indication: DERMATITIS ATOPIC
     Route: 058
     Dates: start: 20160617, end: 20160617
  5. PASTARON [Concomitant]
     Active Substance: UREA
     Indication: DERMATITIS CONTACT
     Dosage: DOSE: APPLICATION DOSE
     Route: 061
     Dates: start: 20170106
  6. HIRUDOID [Concomitant]
     Active Substance: GLYCOSAMINOGLYCANS
     Indication: DERMATITIS ATOPIC
     Dosage: FORM: LOTION; DOSE: APPLICATION DOSE
     Route: 061
     Dates: start: 20120629
  7. ALLEGRA [Concomitant]
     Active Substance: FEXOFENADINE HYDROCHLORIDE
     Indication: DERMATITIS ATOPIC
     Route: 048
     Dates: start: 20110316
  8. SAR231893 [Suspect]
     Active Substance: DUPILUMAB
     Indication: DERMATITIS ATOPIC
     Route: 058
     Dates: start: 20170422
  9. TRIAZOLAM. [Concomitant]
     Active Substance: TRIAZOLAM
     Indication: INSOMNIA
     Route: 048
     Dates: start: 20160328

REACTIONS (1)
  - Gastroenteritis [Recovered/Resolved]

NARRATIVE: CASE EVENT DATE: 20170311
